FAERS Safety Report 12354957 (Version 2)
Quarter: 2016Q2

REPORT INFORMATION
  Report Type: Spontaneous
  Country: GB (occurrence: GB)
  Receive Date: 20160511
  Receipt Date: 20160613
  Transmission Date: 20160815
  Serious: Yes (Other)
  Sender: FDA-Public Use
  Company Number: GB-MDT-ADR-2016-00843

PATIENT
  Sex: Male

DRUGS (1)
  1. COMPOUNDED BACLOFEN [Suspect]
     Active Substance: BACLOFEN
     Dosage: 450 MCG/DAY
     Route: 037
     Dates: end: 20160413

REACTIONS (4)
  - No therapeutic response [Unknown]
  - Muscle spasms [Unknown]
  - Implant site extravasation [Unknown]
  - Adhesion [Unknown]
